FAERS Safety Report 16846334 (Version 1)
Quarter: 2019Q3

REPORT INFORMATION
  Report Type: Spontaneous
  Country: JP (occurrence: JP)
  Receive Date: 20190924
  Receipt Date: 20190924
  Transmission Date: 20191005
  Serious: Yes (Hospitalization)
  Sender: FDA-Public Use
  Company Number: PHHY2019JP216139

PATIENT
  Age: 70 Year
  Sex: Male

DRUGS (3)
  1. LEVOFLOXACIN. [Concomitant]
     Active Substance: LEVOFLOXACIN
     Indication: PNEUMONIA
     Dosage: 500 MG, QD
     Route: 065
  2. PREDNISOLONE. [Suspect]
     Active Substance: PREDNISOLONE
     Indication: RADIATION PNEUMONITIS
     Dosage: 50 MG, QD
     Route: 065
  3. PREDNISOLONE. [Suspect]
     Active Substance: PREDNISOLONE
     Dosage: 35 MG, QD
     Route: 065

REACTIONS (8)
  - Pyrexia [Unknown]
  - Pneumonia [Unknown]
  - Haemoptysis [Recovering/Resolving]
  - Dyspnoea [Unknown]
  - Respiratory failure [Unknown]
  - General physical health deterioration [Unknown]
  - Hypoxia [Unknown]
  - Pulmonary nocardiosis [Recovering/Resolving]
